FAERS Safety Report 10168009 (Version 1)
Quarter: 2014Q2

REPORT INFORMATION
  Report Type: Spontaneous
  Country: FR (occurrence: FR)
  Receive Date: 20140512
  Receipt Date: 20140512
  Transmission Date: 20141212
  Serious: Yes (Other)
  Sender: FDA-Public Use
  Company Number: FR-BRISTOL-MYERS SQUIBB COMPANY-20731816

PATIENT
  Sex: Female

DRUGS (4)
  1. REYATAZ CAPS 150 MG [Suspect]
     Indication: ANTIRETROVIRAL THERAPY
     Dosage: 1DF = 2CAPS
     Route: 048
     Dates: start: 20130717
  2. TRUVADA [Suspect]
     Indication: ANTIRETROVIRAL THERAPY
     Dosage: EMTRICITABINE 200MG/TENOFOVIR 245MG?1DF = 1 UNIT NOS
     Route: 048
     Dates: start: 20130717
  3. NORVIR [Suspect]
     Indication: ANTIRETROVIRAL THERAPY
     Route: 048
     Dates: start: 20130717
  4. ENTOCORT [Suspect]
     Indication: CROHN^S DISEASE
     Dosage: 3MG?1DF = 1 UNIT NOS
     Route: 048

REACTIONS (2)
  - Abortion induced [Unknown]
  - Pregnancy [Recovered/Resolved]
